FAERS Safety Report 20613181 (Version 3)
Quarter: 2022Q3

REPORT INFORMATION
  Report Type: Spontaneous
  Country: US (occurrence: US)
  Receive Date: 20220318
  Receipt Date: 20220806
  Transmission Date: 20221026
  Serious: No
  Sender: FDA-Public Use
  Company Number: US-SA-SAC20220314000565

PATIENT
  Age: 28 Year
  Sex: Male

DRUGS (1)
  1. DUPIXENT [Suspect]
     Active Substance: DUPILUMAB
     Indication: Dermatitis atopic
     Dosage: 300 MG FREQUENCY: OTHER
     Route: 058
     Dates: start: 202201

REACTIONS (7)
  - Influenza like illness [Not Recovered/Not Resolved]
  - Dry skin [Not Recovered/Not Resolved]
  - Condition aggravated [Not Recovered/Not Resolved]
  - Erythema [Unknown]
  - Pruritus [Unknown]
  - Dermatitis atopic [Unknown]
  - Therapeutic response decreased [Unknown]

NARRATIVE: CASE EVENT DATE: 20220101
